FAERS Safety Report 7934807-0 (Version None)
Quarter: 2011Q4

REPORT INFORMATION
  Report Type: 
  Country: None (occurrence: None)
  Receive Date: 20111122
  Receipt Date: 20110906
  Transmission Date: 20120403
  Serious: No
  Sender: FDA-Public Use
  Company Number: US-BAYER-2011-082314

PATIENT
  Age: 60 Year
  Sex: Male

DRUGS (12)
  1. LISINOPRIL [Concomitant]
  2. RED YEAST RICE [Concomitant]
  3. VITAMIN B COMPLEX CAP [Concomitant]
  4. STAXYN [Suspect]
     Indication: ERECTILE DYSFUNCTION
     Dosage: 10 MG, UNK
     Route: 048
     Dates: start: 20110830, end: 20110831
  5. SIMVASTATIN [Concomitant]
  6. CENTRUM [VIT C,VIT H,B5,B12,D2,FE+,B3,B6,RETINOL,B2,B1 HCL,VIT E] [Concomitant]
  7. FLAX SEED OIL [Concomitant]
  8. ASCORBIC ACID [Concomitant]
  9. VITAMIN B-12 [Concomitant]
  10. RESTORIL [Concomitant]
  11. COQ10 [Concomitant]
  12. FISH OIL [Concomitant]

REACTIONS (1)
  - DRUG INEFFECTIVE [None]
